FAERS Safety Report 8725237 (Version 2)
Quarter: 2012Q4

REPORT INFORMATION
  Report Type: 
  Country: DE (occurrence: DE)
  Receive Date: 20120815
  Receipt Date: 20121019
  Transmission Date: 20130627
  Serious: Yes (Other)
  Sender: FDA-Public Use
  Company Number: DE-BAYER-2012-083098

PATIENT
  Age: 63 Year
  Sex: Male
  Weight: 92 kg

DRUGS (2)
  1. LEVITRA [Suspect]
     Dosage: 1/2 or 1/4 tablet
     Route: 048
     Dates: start: 2009
  2. LEVITRA [Suspect]
     Dosage: 20 mg, PRN
     Route: 048
     Dates: start: 2006

REACTIONS (2)
  - Amaurosis [Recovered/Resolved]
  - Blindness [Recovered/Resolved]
